FAERS Safety Report 4271340-4 (Version None)
Quarter: 2004Q1

REPORT INFORMATION
  Report Type: 
  Country: None (occurrence: None)
  Receive Date: 20040114
  Receipt Date: 20040114
  Transmission Date: 20041129
  Serious: Yes (Other)
  Sender: FDA-Public Use
  Company Number: None

PATIENT
  Age: 58 Year
  Sex: Male

DRUGS (7)
  1. CIPROFLOXACIN [Suspect]
     Indication: URINARY TRACT INFECTION
     Dosage: 500 MG PO BID
     Route: 048
     Dates: start: 20030729, end: 20030730
  2. CIPROFLOXACIN [Suspect]
     Indication: URINARY TRACT INFECTION
     Dosage: 500 MG PO BID
     Route: 048
     Dates: start: 20030802
  3. DIAZEPAM [Concomitant]
  4. LACTULOSE [Concomitant]
  5. ORAMORPH SR [Concomitant]
  6. PAROXETINE [Concomitant]
  7. TERAZOSIN HCL [Concomitant]

REACTIONS (2)
  - DIZZINESS [None]
  - TINNITUS [None]
